FAERS Safety Report 6961536-2 (Version None)
Quarter: 2010Q3

REPORT INFORMATION
  Report Type: 
  Country: None (occurrence: None)
  Receive Date: 20100901
  Receipt Date: 20100823
  Transmission Date: 20110219
  Serious: Yes (Other)
  Sender: FDA-Public Use
  Company Number: GXKR2010IN09491

PATIENT
  Age: 53 Year
  Sex: Female

DRUGS (3)
  1. INDAPAMIDE (NGX) [Suspect]
     Dosage: 2.5 MG, QMO
  2. REGULAR INSULIN [Concomitant]
  3. AMLODIPINE [Concomitant]
     Dosage: 5 MG, UNK

REACTIONS (6)
  - ANGLE CLOSURE GLAUCOMA [None]
  - CONJUNCTIVAL OEDEMA [None]
  - EYELID OEDEMA [None]
  - FLAT ANTERIOR CHAMBER OF EYE [None]
  - HEADACHE [None]
  - VISUAL ACUITY REDUCED [None]
